FAERS Safety Report 10179178 (Version 7)
Quarter: 2017Q2

REPORT INFORMATION
  Report Type: Spontaneous
  Country: US (occurrence: US)
  Receive Date: 20140519
  Receipt Date: 20170426
  Transmission Date: 20170829
  Serious: Yes (Life-Threatening, Hospitalization, Other)
  Sender: FDA-Public Use
  Company Number: US-SA-2014SA062283

PATIENT
  Age: 68 Year
  Sex: Female
  Weight: 61.23 kg

DRUGS (11)
  1. HYDROCHLOROTHIAZIDE. [Concomitant]
     Active Substance: HYDROCHLOROTHIAZIDE
     Dosage: STRENGTH: 25 MG
     Route: 048
  2. CRESTOR [Concomitant]
     Active Substance: ROSUVASTATIN CALCIUM
     Dosage: STRENGTH: 40 MG AT BEDTIME
     Route: 048
  3. LISINOPRIL. [Concomitant]
     Active Substance: LISINOPRIL
     Dosage: STRENGTH: 10 MG AT BEDTIME
     Route: 048
  4. ASPIRIN. [Concomitant]
     Active Substance: ASPIRIN
  5. LOVASTATIN. [Concomitant]
     Active Substance: LOVASTATIN
     Route: 048
  6. PLAVIX [Suspect]
     Active Substance: CLOPIDOGREL BISULFATE
     Indication: STENT PLACEMENT
     Route: 048
     Dates: start: 20110606, end: 20110923
  7. LISINOPRIL. [Concomitant]
     Active Substance: LISINOPRIL
     Dosage: STRENGTH: 10 MG AT BEDTIME
     Route: 048
  8. TRIAMCINOLONE [Concomitant]
     Active Substance: TRIAMCINOLONE
     Dosage: 1 APP TOPICAL BID
     Route: 061
  9. CRESTOR [Concomitant]
     Active Substance: ROSUVASTATIN CALCIUM
     Dosage: STRENGTH: 40 MG AT BEDTIME
     Route: 048
  10. HYDROCHLOROTHIAZIDE. [Concomitant]
     Active Substance: HYDROCHLOROTHIAZIDE
     Dosage: STRENGTH: 25 MG
     Route: 048
  11. ASPIRIN. [Concomitant]
     Active Substance: ASPIRIN

REACTIONS (21)
  - Cerebral haemorrhage [Recovering/Resolving]
  - Brain midline shift [Unknown]
  - Brain oedema [Not Recovered/Not Resolved]
  - Intraventricular haemorrhage [Recovering/Resolving]
  - Coagulopathy [Unknown]
  - Multiple injuries [Unknown]
  - Mental status changes [Recovered/Resolved]
  - Somnolence [Recovered/Resolved]
  - Haemorrhage intracranial [Recovering/Resolving]
  - Cerebral haemorrhage [Recovering/Resolving]
  - Subarachnoid haemorrhage [Recovering/Resolving]
  - Cerebellar haematoma [Recovering/Resolving]
  - Hemiparesis [Unknown]
  - Muscular weakness [Unknown]
  - Intracranial mass [Unknown]
  - Balance disorder [Unknown]
  - Urinary tract infection [Unknown]
  - Metabolic disorder [Unknown]
  - Unresponsive to stimuli [Recovered/Resolved]
  - Mobility decreased [Unknown]
  - Post-traumatic epilepsy [Recovered/Resolved]

NARRATIVE: CASE EVENT DATE: 20110923
